FAERS Safety Report 6899057-8 (Version None)
Quarter: 2010Q3

REPORT INFORMATION
  Report Type: 
  Country: None (occurrence: None)
  Receive Date: 20100802
  Receipt Date: 20071228
  Transmission Date: 20110219
  Serious: No
  Sender: FDA-Public Use
  Company Number: US-PFIZER INC-2007108078

PATIENT
  Sex: Female
  Weight: 68.181 kg

DRUGS (3)
  1. LYRICA [Suspect]
     Indication: NERVE INJURY
     Dates: start: 20070409
  2. CLONAZEPAM [Concomitant]
  3. SYNTHROID [Concomitant]

REACTIONS (6)
  - COGNITIVE DISORDER [None]
  - DRUG INEFFECTIVE [None]
  - INSOMNIA [None]
  - MENTAL IMPAIRMENT [None]
  - PAIN [None]
  - SPEECH DISORDER [None]
